FAERS Safety Report 9115648 (Version 1)
Quarter: 2013Q1

REPORT INFORMATION
  Report Type: Spontaneous
  Country: US (occurrence: US)
  Receive Date: 20130225
  Receipt Date: 20130225
  Transmission Date: 20140127
  Serious: Yes (Other)
  Sender: FDA-Public Use
  Company Number: US-BRISTOL-MYERS SQUIBB COMPANY-16823882

PATIENT
  Sex: Female

DRUGS (1)
  1. KENALOG [Suspect]
     Indication: HEADACHE
     Dates: start: 2012

REACTIONS (4)
  - Menorrhagia [Unknown]
  - Immunodeficiency [Unknown]
  - Fluid retention [Unknown]
  - Decreased appetite [Unknown]
